FAERS Safety Report 7347190-9 (Version None)
Quarter: 2011Q1

REPORT INFORMATION
  Report Type: 
  Country: None (occurrence: None)
  Receive Date: 20110311
  Receipt Date: 20110307
  Transmission Date: 20110831
  Serious: Yes (Other)
  Sender: FDA-Public Use
  Company Number: GB-PFIZER INC-2011049938

PATIENT
  Age: 40 Year
  Sex: Male

DRUGS (4)
  1. LYRICA [Suspect]
     Dosage: 300 MG, 2X/DAY
  2. AMITRIPTYLINE [Concomitant]
  3. LAMOTRIGINE [Concomitant]
     Dosage: 200 MG, 1X/DAY
  4. CLOZAPINE [Concomitant]
     Dosage: 600 MG, 1X/DAY

REACTIONS (1)
  - DRUG LEVEL CHANGED [None]
